FAERS Safety Report 8467327-8 (Version None)
Quarter: 2012Q2

REPORT INFORMATION
  Report Type: 
  Country: None (occurrence: None)
  Receive Date: 20120626
  Receipt Date: 20120619
  Transmission Date: 20120825
  Serious: Yes (Hospitalization)
  Sender: FDA-Public Use
  Company Number: TR-ABBOTT-12P-161-0947970-00

PATIENT
  Sex: Female
  Weight: 45 kg

DRUGS (2)
  1. STALORAL [Concomitant]
     Indication: PRODUCT USED FOR UNKNOWN INDICATION
     Dosage: 3X1/WEEK
     Route: 048
  2. LEUPROLIDE ACETATE [Suspect]
     Indication: PRECOCIOUS PUBERTY
     Dosage: 3M
     Route: 030
     Dates: start: 20120101, end: 20120611

REACTIONS (2)
  - HEMIPLEGIA [None]
  - CAROTID ARTERY DISSECTION [None]
